FAERS Safety Report 19744375 (Version 1)
Quarter: 2021Q3

REPORT INFORMATION
  Report Type: Spontaneous
  Country: US (occurrence: US)
  Receive Date: 20210823
  Receipt Date: 20210823
  Transmission Date: 20211014
  Serious: Yes (Other)
  Sender: FDA-Public Use
  Company Number: None

PATIENT
  Age: 57 Year
  Sex: Male
  Weight: 94.5 kg

DRUGS (1)
  1. BASIC CARE SLEEP AID [Suspect]
     Active Substance: DOXYLAMINE SUCCINATE
     Indication: SLEEP DISORDER THERAPY
     Dosage: ?          QUANTITY:96 TABLET(S);?
     Route: 048

REACTIONS (3)
  - Product lot number issue [None]
  - Anxiety [None]
  - Product quality issue [None]
